FAERS Safety Report 8616786 (Version 2)
Quarter: 2013Q1

REPORT INFORMATION
  Report Type: Spontaneous
  Country: FR (occurrence: FR)
  Receive Date: 20120615
  Receipt Date: 20130306
  Transmission Date: 20140127
  Serious: Yes (Life-Threatening, Hospitalization)
  Sender: FDA-Public Use
  Company Number: FR-BRISTOL-MYERS SQUIBB COMPANY-16669962

PATIENT
  Age: 50 Year
  Sex: Male

DRUGS (2)
  1. REYATAZ CAPS 300 MG [Suspect]
  2. RITONAVIR [Suspect]

REACTIONS (2)
  - Renal failure chronic [Not Recovered/Not Resolved]
  - Coma [Unknown]
